FAERS Safety Report 20215646 (Version 2)
Quarter: 2022Q1

REPORT INFORMATION
  Report Type: Spontaneous
  Country: PL (occurrence: PL)
  Receive Date: 20211222
  Receipt Date: 20220215
  Transmission Date: 20220423
  Serious: Yes (Other)
  Sender: FDA-Public Use
  Company Number: PL-EMA-DD-20211215-kumarvn_p-103235

PATIENT
  Age: 47 Year
  Sex: Female

DRUGS (22)
  1. LAMOTRIGINE [Suspect]
     Active Substance: LAMOTRIGINE
     Indication: Mood swings
     Dosage: 50 MG, QD (50 MILLIGRAM, DAILY)
     Route: 065
     Dates: start: 20200616
  2. LAMOTRIGINE [Suspect]
     Active Substance: LAMOTRIGINE
     Dosage: 100 MG, QD
     Route: 065
  3. DIAZEPAM [Suspect]
     Active Substance: DIAZEPAM
     Indication: Product used for unknown indication
     Dosage: 5 MG, PRN, AS NECESSARY
     Route: 065
  4. PROPRANOLOL [Suspect]
     Active Substance: PROPRANOLOL HYDROCHLORIDE
     Indication: Product used for unknown indication
     Dosage: UNK
     Route: 065
  5. SERTRALINE [Suspect]
     Active Substance: SERTRALINE HYDROCHLORIDE
     Indication: Anxiety
     Dosage: 100 MG, QD, 100 MILLIGRAM, DAILY
     Route: 065
  6. SERTRALINE [Suspect]
     Active Substance: SERTRALINE HYDROCHLORIDE
     Indication: Depression
     Dosage: 150 MG, QD
     Route: 065
  7. SERTRALINE [Suspect]
     Active Substance: SERTRALINE HYDROCHLORIDE
     Dosage: 50 MG, QD
     Route: 065
  8. SERTRALINE [Suspect]
     Active Substance: SERTRALINE HYDROCHLORIDE
     Dosage: UNK
     Route: 065
  9. LURASIDONE [Suspect]
     Active Substance: LURASIDONE
     Indication: Schizophrenia
     Dosage: 37.5 MG, 37.5 MILLIGRAM, UNK
     Route: 065
  10. PREGABALIN [Suspect]
     Active Substance: PREGABALIN
     Indication: Anxiety
     Dosage: 75 MG, 75 MILLIGRAM, UNK
     Route: 065
     Dates: end: 20200616
  11. RISPERIDONE [Suspect]
     Active Substance: RISPERIDONE
     Indication: Psychomotor retardation
     Dosage: 5 MG, QD (5 MILLIGRAM, DAILY)
     Route: 065
  12. RISPERIDONE [Suspect]
     Active Substance: RISPERIDONE
     Dosage: 2 MG, QD
     Route: 065
  13. RISPERIDONE [Suspect]
     Active Substance: RISPERIDONE
     Dosage: 6 MG, QD, 6 MILLIGRAM, DAILY
     Route: 065
  14. OLANZAPINE [Suspect]
     Active Substance: OLANZAPINE
     Indication: Product used for unknown indication
     Dosage: 5 MG, QD, 5 MILLIGRAM, DAILY
     Route: 065
     Dates: start: 20211023
  15. ARIPIPRAZOLE [Suspect]
     Active Substance: ARIPIPRAZOLE
     Indication: Schizophrenia
     Dosage: 10 MG, QD, 10 MILLIGRAM, DAILY
     Route: 065
     Dates: start: 20201120
  16. ARIPIPRAZOLE [Suspect]
     Active Substance: ARIPIPRAZOLE
     Indication: Perseveration
  17. ARIPIPRAZOLE [Suspect]
     Active Substance: ARIPIPRAZOLE
     Indication: Psychomotor hyperactivity
  18. ARIPIPRAZOLE [Suspect]
     Active Substance: ARIPIPRAZOLE
     Indication: Hallucination, visual
  19. BIPERIDEN [Suspect]
     Active Substance: BIPERIDEN
     Indication: Extrapyramidal disorder
     Dosage: 6 MG, QD, 6 MILLIGRAM, DAILY
     Route: 048
  20. HALOPERIDOL [Suspect]
     Active Substance: HALOPERIDOL
     Indication: Abnormal behaviour
     Dosage: 1 DF, QD, 3 AMPOULES A DAY
     Route: 030
  21. HALOPERIDOL [Suspect]
     Active Substance: HALOPERIDOL
     Dosage: UNK
     Route: 048
  22. ETHAMSYLATE [Concomitant]
     Active Substance: ETHAMSYLATE
     Indication: Genital haemorrhage
     Dosage: UNK
     Route: 065

REACTIONS (20)
  - Somnolence [Recovered/Resolved]
  - Cognitive disorder [Unknown]
  - Psychomotor retardation [Unknown]
  - Weight increased [Unknown]
  - Negative symptoms in schizophrenia [Unknown]
  - Mood swings [Unknown]
  - Hyperprolactinaemia [Unknown]
  - Flatulence [Unknown]
  - Hyperhidrosis [Recovered/Resolved]
  - Somnolence [Unknown]
  - Urinary incontinence [Recovered/Resolved]
  - Pain [Unknown]
  - Psychotic symptom [Recovering/Resolving]
  - Dizziness [Unknown]
  - Somnolence [Unknown]
  - Distractibility [Unknown]
  - Constipation [Unknown]
  - Anxiety [Unknown]
  - Drug ineffective [Unknown]
  - Hyperhidrosis [Unknown]
